FAERS Safety Report 10040169 (Version 2)
Quarter: 2014Q1

REPORT INFORMATION
  Report Type: Spontaneous
  Country: DE (occurrence: DE)
  Receive Date: 20140326
  Receipt Date: 20140331
  Transmission Date: 20141002
  Serious: Yes (Hospitalization)
  Sender: FDA-Public Use
  Company Number: DE-JNJFOC-20140314378

PATIENT
  Age: 75 Year
  Sex: Female
  Weight: 90 kg

DRUGS (9)
  1. IBUPROFEN [Suspect]
     Indication: SUICIDE ATTEMPT
     Route: 065
  2. PANTOZOL [Suspect]
     Indication: SUICIDE ATTEMPT
     Route: 065
  3. CYMBALTA [Suspect]
     Indication: SUICIDE ATTEMPT
     Route: 065
  4. SIFROL [Suspect]
     Indication: SUICIDE ATTEMPT
     Route: 065
  5. LEVOCOMP [Suspect]
     Indication: SUICIDE ATTEMPT
     Dosage: 200MG/50MG LEVODOPA/CARBIDOPA
     Route: 065
  6. STALEVO [Suspect]
     Indication: SUICIDE ATTEMPT
     Dosage: TOOK 4 TABLETS TOGETHER
     Route: 065
  7. OXYGESIC [Suspect]
     Indication: SUICIDE ATTEMPT
     Route: 065
  8. LYRICA [Suspect]
     Indication: SUICIDE ATTEMPT
     Route: 065
  9. MADOPAR [Suspect]
     Indication: SUICIDE ATTEMPT
     Dosage: 150/37.5 MG LEVODOPA/BENZERAZID
     Route: 065

REACTIONS (3)
  - Suicide attempt [Unknown]
  - Restlessness [Unknown]
  - Anxiety [Unknown]
